FAERS Safety Report 16237376 (Version 1)
Quarter: 2019Q2

REPORT INFORMATION
  Report Type: Spontaneous
  Country: US (occurrence: US)
  Receive Date: 20190320
  Receipt Date: 20190320
  Transmission Date: 20190711
  Serious: No
  Sender: FDA-Public Use
  Company Number: None

PATIENT
  Age: 65 Year
  Sex: Male
  Weight: 67.81 kg

DRUGS (1)
  1. INFLIXIMAB-DYYB [Suspect]
     Active Substance: INFLIXIMAB-DYYB
     Indication: CROHN^S DISEASE
     Route: 042
     Dates: start: 20181231, end: 20181231

REACTIONS (8)
  - Rash [None]
  - Musculoskeletal stiffness [None]
  - Wheezing [None]
  - Cough [None]
  - Pallor [None]
  - Anaphylactic reaction [None]
  - Dyspnoea [None]
  - Blood pressure abnormal [None]

NARRATIVE: CASE EVENT DATE: 20181231
